FAERS Safety Report 15005331 (Version 1)
Quarter: 2018Q2

REPORT INFORMATION
  Report Type: Spontaneous
  Country: US (occurrence: US)
  Receive Date: 20180613
  Receipt Date: 20180613
  Transmission Date: 20180711
  Serious: No
  Sender: FDA-Public Use
  Company Number: US-MYLANLABS-2018M1035044

PATIENT
  Sex: Female

DRUGS (2)
  1. ATENOLOL TEVA [Suspect]
     Active Substance: ATENOLOL
     Indication: PRODUCT USED FOR UNKNOWN INDICATION
     Dosage: 25 MG, BID
  2. ATENOLOL TABLETS, USP [Suspect]
     Active Substance: ATENOLOL
     Indication: PRODUCT USED FOR UNKNOWN INDICATION
     Dosage: 25 MG, BID
     Route: 065
     Dates: end: 201707

REACTIONS (3)
  - Product availability issue [Unknown]
  - Insomnia [Unknown]
  - Palpitations [Unknown]
